FAERS Safety Report 5485996-1 (Version None)
Quarter: 2007Q4

REPORT INFORMATION
  Report Type: 
  Country: None (occurrence: None)
  Receive Date: 20071012
  Receipt Date: 20070927
  Transmission Date: 20080405
  Serious: Yes (Hospitalization)
  Sender: FDA-Public Use
  Company Number: 2007S1009146

PATIENT
  Age: 4 Year
  Sex: Male

DRUGS (1)
  1. AMITRIPTYLINE HYDROCHLORIDE [Suspect]
     Dosage: 70 MG/KG;X1;

REACTIONS (9)
  - BRADYCARDIA [None]
  - COMA [None]
  - DRUG INEFFECTIVE [None]
  - EXTRASYSTOLES [None]
  - GRAND MAL CONVULSION [None]
  - HYPOTENSION [None]
  - HYPOVENTILATION [None]
  - VENTRICULAR FIBRILLATION [None]
  - VENTRICULAR TACHYCARDIA [None]
